FAERS Safety Report 8569954-6 (Version None)
Quarter: 2012Q3

REPORT INFORMATION
  Report Type: 
  Country: None (occurrence: None)
  Receive Date: 20120803
  Receipt Date: 20120403
  Transmission Date: 20120928
  Serious: No
  Sender: FDA-Public Use
  Company Number: US-ABBOTT-12P-163-0921457-00

PATIENT
  Sex: Female
  Weight: 99.88 kg

DRUGS (4)
  1. UNKNOWN PAIN MEDICATION [Concomitant]
     Indication: PRODUCT USED FOR UNKNOWN INDICATION
  2. UNKNOWN MUSCLE RELAXANT [Concomitant]
     Indication: PRODUCT USED FOR UNKNOWN INDICATION
  3. NIASPAN [Suspect]
     Indication: BLOOD TRIGLYCERIDES INCREASED
     Dosage: AT DINNER
     Dates: start: 20120301
  4. UNKNOWN HEARTBURN MEDICATION [Concomitant]
     Indication: PRODUCT USED FOR UNKNOWN INDICATION

REACTIONS (5)
  - MUSCLE SPASMS [None]
  - ERYTHEMA [None]
  - PARAESTHESIA [None]
  - PAIN IN EXTREMITY [None]
  - HOT FLUSH [None]
